FAERS Safety Report 10866600 (Version 1)
Quarter: 2015Q1

REPORT INFORMATION
  Report Type: Spontaneous
  Country: BE (occurrence: None)
  Receive Date: 20150220
  Receipt Date: 20150220
  Transmission Date: 20150721
  Serious: Yes (Death, Hospitalization, Other)
  Sender: FDA-Public Use
  Company Number: 2015SCAL000041

PATIENT
  Age: 38 Year
  Sex: Female

DRUGS (3)
  1. VENLAFAXINE HYDROCHLORIDE. [Suspect]
     Active Substance: VENLAFAXINE HYDROCHLORIDE
     Indication: PRODUCT USED FOR UNKNOWN INDICATION
     Route: 048
  2. BENZODIAZEPINE DERIVATIVES [Suspect]
     Active Substance: BENZODIAZEPINE
     Indication: PRODUCT USED FOR UNKNOWN INDICATION
     Route: 048
  3. ETHANOL [Suspect]
     Active Substance: ALCOHOL
     Indication: PRODUCT USED FOR UNKNOWN INDICATION
     Route: 048

REACTIONS (16)
  - Overdose [None]
  - Arrhythmia [None]
  - Atrial fibrillation [None]
  - Cardiogenic shock [None]
  - Hepatic ischaemia [None]
  - Multi-organ failure [None]
  - Acute kidney injury [None]
  - Rhabdomyolysis [None]
  - Serotonin syndrome [None]
  - Hepatic necrosis [None]
  - Acute lung injury [None]
  - Acute left ventricular failure [None]
  - Pneumococcal sepsis [None]
  - Toxicity to various agents [None]
  - Coma [None]
  - Ventricular tachycardia [None]
